FAERS Safety Report 5449609-7 (Version None)
Quarter: 2007Q3

REPORT INFORMATION
  Report Type: 
  Country: None (occurrence: None)
  Receive Date: 20070910
  Receipt Date: 20070824
  Transmission Date: 20080115
  Serious: Yes (Other)
  Sender: FDA-Public Use
  Company Number: URSO-2007-178

PATIENT
  Age: 67 Year
  Sex: Male

DRUGS (3)
  1. URSO 250 [Suspect]
     Indication: CHOLANGITIS SCLEROSING
     Dosage: 1000 MG ORAL
     Route: 048
     Dates: start: 20020101
  2. NEXIUM [Suspect]
  3. METFORMIN HCL [Concomitant]

REACTIONS (4)
  - AUTOIMMUNE DISORDER [None]
  - KIDNEY FIBROSIS [None]
  - PANCREATITIS [None]
  - TUBULOINTERSTITIAL NEPHRITIS [None]
